FAERS Safety Report 20321510 (Version 3)
Quarter: 2022Q1

REPORT INFORMATION
  Report Type: Spontaneous
  Country: US (occurrence: None)
  Receive Date: 20220111
  Receipt Date: 20220310
  Transmission Date: 20220424
  Serious: Yes (Other)
  Sender: FDA-Public Use
  Company Number: 2022A009130

PATIENT
  Sex: Male

DRUGS (1)
  1. BYETTA [Suspect]
     Active Substance: EXENATIDE
     Indication: Type 2 diabetes mellitus
     Dosage: 250MCG/2.4ML
     Route: 058

REACTIONS (4)
  - Blood glucose decreased [Unknown]
  - Wrong technique in device usage process [Unknown]
  - Device issue [Unknown]
  - Intentional device misuse [Unknown]
